FAERS Safety Report 21119097 (Version 2)
Quarter: 2022Q3

REPORT INFORMATION
  Report Type: Other
  Country: ES (occurrence: ES)
  Receive Date: 20220722
  Receipt Date: 20220805
  Transmission Date: 20221027
  Serious: Yes (Death, Hospitalization)
  Sender: FDA-Public Use
  Company Number: ES-ROCHE-3144977

PATIENT
  Age: 55 Year
  Sex: Female

DRUGS (3)
  1. RITUXIMAB [Suspect]
     Active Substance: RITUXIMAB
     Indication: Myasthenia gravis
     Dosage: AS PER PROTOCOL WEEKLY FOR FOUR CONSECUTIVE WEEKS AND THEN MONTHLY FOR THE NEXT TWO MONTHS
     Route: 041
  2. PREDNISONE [Suspect]
     Active Substance: PREDNISONE
     Indication: Myasthenia gravis
     Route: 065
  3. CYCLOPHOSPHAMIDE [Suspect]
     Active Substance: CYCLOPHOSPHAMIDE
     Indication: Myasthenia gravis
     Route: 065

REACTIONS (5)
  - Progressive multifocal leukoencephalopathy [Fatal]
  - Cytomegalovirus infection [Recovered/Resolved]
  - Pneumonia legionella [Recovered/Resolved]
  - Off label use [Fatal]
  - Hypogammaglobulinaemia [Unknown]
